FAERS Safety Report 16861045 (Version 1)
Quarter: 2019Q3

REPORT INFORMATION
  Report Type: Spontaneous
  Country: US (occurrence: US)
  Receive Date: 20190805
  Receipt Date: 20190805
  Transmission Date: 20191005
  Serious: Yes (Other)
  Sender: FDA-Public Use
  Company Number: None

PATIENT

DRUGS (2)
  1. FENTANYL. [Suspect]
     Active Substance: FENTANYL
  2. FENTANYL. [Suspect]
     Active Substance: FENTANYL

REACTIONS (5)
  - Discomfort [None]
  - Procedural complication [None]
  - Nausea [None]
  - Oxygen saturation decreased [None]
  - Vomiting [None]

NARRATIVE: CASE EVENT DATE: 20180115
